FAERS Safety Report 6448349-5 (Version None)
Quarter: 2009Q4

REPORT INFORMATION
  Report Type: 
  Country: None (occurrence: None)
  Receive Date: 20091120
  Receipt Date: 20091117
  Transmission Date: 20100525
  Serious: Yes (Death)
  Sender: FDA-Public Use
  Company Number: BE-ASTRAZENECA-2009SE26771

PATIENT
  Age: 27 Year
  Sex: Male
  Weight: 70 kg

DRUGS (6)
  1. QUETIAPINE [Suspect]
  2. MORPHINE [Suspect]
  3. PAPAVERINE [Suspect]
  4. TRAZODONE HCL [Suspect]
  5. SERTRALINE HCL [Suspect]
  6. HEROIN [Suspect]

REACTIONS (4)
  - ACCIDENTAL OVERDOSE [None]
  - CARDIOPULMONARY FAILURE [None]
  - DRUG TOXICITY [None]
  - NERVOUS SYSTEM DISORDER [None]
